FAERS Safety Report 15535783 (Version 1)
Quarter: 2018Q4

REPORT INFORMATION
  Report Type: Spontaneous
  Country: US (occurrence: US)
  Receive Date: 20181020
  Receipt Date: 20181020
  Transmission Date: 20190205
  Serious: No
  Sender: FDA-Public Use
  Company Number: None

PATIENT
  Age: 44 Year
  Sex: Female
  Weight: 82.8 kg

DRUGS (16)
  1. MODAFINIL. [Concomitant]
     Active Substance: MODAFINIL
  2. TROSPIUM CHLORIDE. [Concomitant]
     Active Substance: TROSPIUM CHLORIDE
  3. DILAUDID [Concomitant]
     Active Substance: HYDROMORPHONE HYDROCHLORIDE
  4. SUPER B-COMPLEX WITH ELECTROLYTES [Concomitant]
  5. LASIX [Concomitant]
     Active Substance: FUROSEMIDE
  6. RITALIN [Concomitant]
     Active Substance: METHYLPHENIDATE HYDROCHLORIDE
  7. VTAMIN D3 WITH COCONUT OIL [Concomitant]
  8. ELIQUIS [Concomitant]
     Active Substance: APIXABAN
  9. VITAMINS/SUPPLEMENTS [Concomitant]
  10. ELMIRON [Suspect]
     Active Substance: PENTOSAN POLYSULFATE SODIUM
     Indication: CYSTITIS INTERSTITIAL
     Dosage: ?          QUANTITY:1 CAPSULE(S);?
     Route: 048
     Dates: start: 20030101, end: 20180601
  11. NORTRIPTYLINE [Concomitant]
     Active Substance: NORTRIPTYLINE
  12. SUMATRIPTAN. [Concomitant]
     Active Substance: SUMATRIPTAN
  13. ZOFRAN [Concomitant]
     Active Substance: ONDANSETRON HYDROCHLORIDE
  14. TROKENDI XR [Concomitant]
     Active Substance: TOPIRAMATE
  15. METFORMIN [Concomitant]
     Active Substance: METFORMIN HYDROCHLORIDE
  16. PHENERGAN [Concomitant]
     Active Substance: PROMETHAZINE HYDROCHLORIDE

REACTIONS (3)
  - Dyspnoea [None]
  - Oedema [None]
  - Fluid retention [None]

NARRATIVE: CASE EVENT DATE: 20171212
